FAERS Safety Report 6700379-1 (Version None)
Quarter: 2010Q2

REPORT INFORMATION
  Report Type: 
  Country: None (occurrence: None)
  Receive Date: 20100428
  Receipt Date: 20100416
  Transmission Date: 20101027
  Serious: Yes (Other)
  Sender: FDA-Public Use
  Company Number: PL-ROCHE-697889

PATIENT
  Sex: Female

DRUGS (1)
  1. ROACTEMRA [Suspect]
     Indication: RHEUMATOID ARTHRITIS
     Dosage: RECEIVED 05 DOSES, LAST DOSE RECEIVED ON 26 MARCH 2010.
     Route: 042
     Dates: start: 20091119

REACTIONS (1)
  - DISEASE PROGRESSION [None]
